FAERS Safety Report 5330931-X (Version None)
Quarter: 2007Q2

REPORT INFORMATION
  Report Type: 
  Country: None (occurrence: None)
  Receive Date: 20070522
  Receipt Date: 20070511
  Transmission Date: 20071010
  Serious: Yes (Other)
  Sender: FDA-Public Use
  Company Number: NO-JNJFOC-20070503693

PATIENT
  Age: 14 Year
  Sex: Female

DRUGS (7)
  1. REMICADE [Suspect]
     Route: 042
  2. REMICADE [Suspect]
     Indication: RHEUMATOID ARTHRITIS
     Route: 042
  3. METHOTREXATE [Concomitant]
     Route: 058
  4. NAPROSYN [Concomitant]
  5. INSULIN [Concomitant]
  6. ZYRTEC [Concomitant]
     Indication: PREMEDICATION
  7. PHENAMIN [Concomitant]
     Indication: PREMEDICATION

REACTIONS (5)
  - INFUSION RELATED REACTION [None]
  - PALLOR [None]
  - PALPITATIONS [None]
  - RESPIRATORY DISORDER [None]
  - TACHYCARDIA [None]
